FAERS Safety Report 4800702-9 (Version None)
Quarter: 2005Q4

REPORT INFORMATION
  Report Type: 
  Country: None (occurrence: None)
  Receive Date: 20051017
  Receipt Date: 20050929
  Transmission Date: 20060501
  Serious: Yes (Other)
  Sender: FDA-Public Use
  Company Number: US-MERCK-0509USA04734

PATIENT
  Age: 75 Year
  Sex: Male

DRUGS (4)
  1. VIOXX [Suspect]
     Indication: ARTHRITIS
     Route: 048
     Dates: start: 19990901, end: 20040901
  2. NEXIUM [Concomitant]
     Route: 065
  3. CARDURA [Concomitant]
     Route: 065
  4. ASPIRIN [Concomitant]
     Route: 065

REACTIONS (2)
  - CARDIOVASCULAR DISORDER [None]
  - SILENT MYOCARDIAL INFARCTION [None]
